FAERS Safety Report 25944527 (Version 1)
Quarter: 2025Q4

REPORT INFORMATION
  Report Type: Spontaneous
  Country: US (occurrence: US)
  Receive Date: 20251021
  Receipt Date: 20251021
  Transmission Date: 20260118
  Serious: Yes (Hospitalization, Other)
  Sender: SANOFI AVENTIS
  Company Number: US-SANOFI-02688256

PATIENT
  Age: 63 Year
  Sex: Male

DRUGS (1)
  1. DUPILUMAB [Suspect]
     Active Substance: DUPILUMAB
     Indication: Asthma
     Dosage: UNK

REACTIONS (10)
  - Laryngeal cryptococcosis [Recovered/Resolved]
  - Dysphonia [Recovered/Resolved]
  - Cough [Recovered/Resolved]
  - Throat irritation [Recovered/Resolved]
  - Throat clearing [Recovered/Resolved]
  - Erythema [Recovered/Resolved]
  - Purulent discharge [Recovered/Resolved]
  - Mucosal disorder [Recovered/Resolved]
  - Granuloma [Recovered/Resolved]
  - Mucosal inflammation [Recovered/Resolved]
